FAERS Safety Report 18199272 (Version 1)
Quarter: 2020Q3

REPORT INFORMATION
  Report Type: Spontaneous
  Country: CA (occurrence: CA)
  Receive Date: 20200826
  Receipt Date: 20200826
  Transmission Date: 20201103
  Serious: Yes (Hospitalization)
  Sender: FDA-Public Use
  Company Number: CA-ALLERGAN-2031852US

PATIENT
  Sex: Male
  Weight: 88 kg

DRUGS (5)
  1. LITHIUM. [Concomitant]
     Active Substance: LITHIUM
     Route: 065
  2. QUETIAPINE. [Concomitant]
     Active Substance: QUETIAPINE
     Route: 065
  3. ESCITALOPRAM OXALATE ? BP [Suspect]
     Active Substance: ESCITALOPRAM OXALATE
     Indication: OBSESSIVE-COMPULSIVE DISORDER
     Dosage: OVERDOSE: 30MG OF CIPRALEX
     Route: 048
  4. ESCITALOPRAM OXALATE ? BP [Suspect]
     Active Substance: ESCITALOPRAM OXALATE
     Indication: DEPRESSION
     Dosage: UNK
     Route: 065
  5. ABILIFY [Suspect]
     Active Substance: ARIPIPRAZOLE
     Indication: AFFECTIVE DISORDER
     Dosage: 30 MG, QD
     Route: 065

REACTIONS (5)
  - Euphoric mood [Not Recovered/Not Resolved]
  - Flight of ideas [Not Recovered/Not Resolved]
  - Logorrhoea [Not Recovered/Not Resolved]
  - Overdose [Unknown]
  - Mania [Not Recovered/Not Resolved]
